FAERS Safety Report 9403537 (Version 2)
Quarter: 2013Q3

REPORT INFORMATION
  Report Type: Spontaneous
  Country: JP (occurrence: JP)
  Receive Date: 20130716
  Receipt Date: 20130814
  Transmission Date: 20140515
  Serious: Yes (Other)
  Sender: FDA-Public Use
  Company Number: JP-PFIZER INC-2013203693

PATIENT
  Age: 8 Month
  Sex: Female

DRUGS (6)
  1. FLUDARABINE PHOSPHATE [Suspect]
     Indication: CHEMOTHERAPY
     Dosage: 30 MG/M2 PER DOSE X 5 DAYS
  2. CYCLOPHOSPHAMIDE [Suspect]
     Indication: CHEMOTHERAPY
     Dosage: 50 MG/KG PER DOSE X 2 DAYS
  3. ANTITHYMOCYTE IMMUNOGLOBULIN [Concomitant]
     Indication: CHEMOTHERAPY
     Dosage: 30 MG/KG PER DOSE 3 DAYS
  4. CYCLOSPORIN [Concomitant]
     Indication: PROPHYLAXIS
     Dosage: UNK
  5. METHOTREXATE [Concomitant]
     Indication: PROPHYLAXIS
     Dosage: UNK
  6. MYCOPHENOLATE MOFETIL [Concomitant]
     Indication: PROPHYLAXIS
     Dosage: UNK

REACTIONS (1)
  - Leukaemia [Recovered/Resolved]
